FAERS Safety Report 11820027 (Version 1)
Quarter: 2015Q4

REPORT INFORMATION
  Report Type: Spontaneous
  Country: FR (occurrence: FR)
  Receive Date: 20151210
  Receipt Date: 20151210
  Transmission Date: 20160305
  Serious: Yes (Life-Threatening, Hospitalization)
  Sender: FDA-Public Use
  Company Number: FR-ACCORD-036126

PATIENT
  Age: 1 Hour
  Sex: Male
  Weight: 1.77 kg

DRUGS (4)
  1. OXALIPLATIN. [Suspect]
     Active Substance: OXALIPLATIN
     Indication: COLORECTAL CANCER
     Dosage: PT.TOOK FOLFOX ON 19-OCT AND 02-NOV-2015 (OXALIPLATIN AT 85 MG/M2)
     Route: 064
     Dates: start: 20151019
  2. FOLINIC ACID [Suspect]
     Active Substance: LEUCOVORIN
     Indication: COLORECTAL CANCER
     Dosage: PT.TOOK FOLFOX ON 19-OCT AND 02-NOV-2015- 400 MG/M2
     Route: 064
     Dates: start: 20151019
  3. METHYLPREDNISONE [Concomitant]
     Active Substance: METHYLPREDNISOLONE
  4. FLUOROURACIL. [Suspect]
     Active Substance: FLUOROURACIL
     Indication: COLORECTAL CANCER
     Dosage: PT.TOOK FOLFOX ON 19-OCT-2015 ON 02-NOV-2015 (FLUOROURACIL AT DOSE OF 3 MG/M2).
     Route: 064
     Dates: start: 20151019

REACTIONS (2)
  - Premature delivery [Unknown]
  - Foetal exposure during pregnancy [Unknown]

NARRATIVE: CASE EVENT DATE: 20151115
